FAERS Safety Report 8033311-1 (Version None)
Quarter: 2012Q1

REPORT INFORMATION
  Report Type: 
  Country: None (occurrence: None)
  Receive Date: 20120110
  Receipt Date: 20111020
  Transmission Date: 20120608
  Serious: Yes (Hospitalization)
  Sender: FDA-Public Use
  Company Number: CA-JNJFOC-20111212482

PATIENT
  Sex: Female
  Weight: 80.02 kg

DRUGS (5)
  1. E VITAMIN [Concomitant]
  2. PRILOSEC [Concomitant]
  3. REMICADE [Suspect]
     Indication: RHEUMATOID ARTHRITIS
     Route: 042
  4. CELEBREX [Concomitant]
  5. ELAVIL [Concomitant]

REACTIONS (1)
  - KNEE ARTHROPLASTY [None]
